FAERS Safety Report 9044522 (Version 1)
Quarter: 2013Q1

REPORT INFORMATION
  Report Type: Report from Study
  Country: US (occurrence: US)
  Receive Date: 20130130
  Receipt Date: 20130130
  Transmission Date: 20140127
  Serious: No
  Sender: FDA-Public Use
  Company Number: US-ABBOTT-12P-163-0958246-00

PATIENT
  Age: 56 Year
  Sex: Female

DRUGS (8)
  1. HUMIRA 40 MG/0.8 ML PEN [Suspect]
     Indication: CROHN^S DISEASE
     Dosage: LOADING DOSE
     Route: 058
     Dates: start: 20120719, end: 20120719
  2. HUMIRA 40 MG/0.8 ML PEN [Suspect]
     Route: 058
  3. OXYCODONE [Concomitant]
     Indication: PAIN
     Route: 048
  4. SOMA [Concomitant]
     Indication: BACK PAIN
  5. ATENOLOL [Concomitant]
     Indication: BLOOD PRESSURE INCREASED
  6. PREMARIN [Concomitant]
     Indication: MENOPAUSE
     Route: 048
  7. CARAFATE [Concomitant]
     Indication: CROHN^S DISEASE
     Route: 048
  8. HYDROCODONE [Concomitant]
     Indication: PAIN

REACTIONS (2)
  - Injection site pain [Recovered/Resolved]
  - Injection site pain [Recovered/Resolved]
